FAERS Safety Report 7322934-0 (Version None)
Quarter: 2011Q1

REPORT INFORMATION
  Report Type: 
  Country: None (occurrence: None)
  Receive Date: 20110301
  Receipt Date: 20110216
  Transmission Date: 20110831
  Serious: Yes (Disabling)
  Sender: FDA-Public Use
  Company Number: PHHY2011ZA13281

PATIENT

DRUGS (1)
  1. COARTEM [Suspect]
     Indication: MALARIA
     Dosage: 20 / 120 MG
     Dates: start: 20110215

REACTIONS (1)
  - DYSARTHRIA [None]
